FAERS Safety Report 4540804-8 (Version None)
Quarter: 2004Q4

REPORT INFORMATION
  Report Type: 
  Country: None (occurrence: None)
  Receive Date: 20041229
  Receipt Date: 20041119
  Transmission Date: 20050328
  Serious: Yes (Other)
  Sender: FDA-Public Use
  Company Number: US-GLAXOSMITHKLINE-A0535139A

PATIENT
  Age: 85 Year
  Sex: Female

DRUGS (1)
  1. TUMS [Suspect]
     Route: 048

REACTIONS (1)
  - DIABETES MELLITUS NON-INSULIN-DEPENDENT [None]
